FAERS Safety Report 24288912 (Version 1)
Quarter: 2024Q3

REPORT INFORMATION
  Report Type: Spontaneous
  Country: US (occurrence: US)
  Receive Date: 20240906
  Receipt Date: 20240906
  Transmission Date: 20241017
  Serious: No
  Sender: LUPIN
  Company Number: US-LUPIN PHARMACEUTICALS INC.-2024-08376

PATIENT

DRUGS (3)
  1. ALBUTEROL SULFATE [Suspect]
     Active Substance: ALBUTEROL SULFATE
     Indication: Asthma
     Dosage: UNK  (1-2 PUFFS BY MOUTH EVERY 4 HOURS)
     Dates: start: 202406
  2. ALBUTEROL SULFATE [Suspect]
     Active Substance: ALBUTEROL SULFATE
     Indication: Chronic obstructive pulmonary disease
     Dosage: UNK  (1-2 PUFFS BY MOUTH EVERY 4 HOURS)
     Dates: start: 202406
  3. ALBUTEROL SULFATE [Suspect]
     Active Substance: ALBUTEROL SULFATE
     Dosage: UNK  (1-2 PUFFS BY MOUTH EVERY 4 HOURS)
     Dates: start: 202406

REACTIONS (4)
  - Device delivery system issue [Unknown]
  - Device deposit issue [Unknown]
  - Product preparation error [Unknown]
  - No adverse event [Unknown]
